FAERS Safety Report 7792728-0 (Version None)
Quarter: 2011Q4

REPORT INFORMATION
  Report Type: 
  Country: None (occurrence: None)
  Receive Date: 20111003
  Receipt Date: 20110923
  Transmission Date: 20120403
  Serious: Yes (Other)
  Sender: FDA-Public Use
  Company Number: US-ASTRAZENECA-2011SE57670

PATIENT
  Age: 71 Year
  Sex: Male

DRUGS (1)
  1. PULMICORT FLEXHALER [Suspect]
     Dosage: TWO PUFFS
     Route: 055

REACTIONS (2)
  - DYSPNOEA [None]
  - PNEUMOTHORAX [None]
